FAERS Safety Report 5207053-1 (Version None)
Quarter: 2007Q1

REPORT INFORMATION
  Report Type: 
  Country: None (occurrence: None)
  Receive Date: 20070110
  Receipt Date: 20060809
  Transmission Date: 20070707
  Serious: Yes (Hospitalization)
  Sender: FDA-Public Use
  Company Number: S07-USA-00061-01

PATIENT
  Sex: Female

DRUGS (2)
  1. LEXAPRO [Suspect]
     Dates: start: 20030128
  2. BIAXIN [Suspect]
     Dates: start: 20040802

REACTIONS (6)
  - AFFECTIVE DISORDER [None]
  - BIPOLAR DISORDER [None]
  - DRUG INTERACTION [None]
  - DRUG PRESCRIBING ERROR [None]
  - INCORRECT DOSE ADMINISTERED [None]
  - PSYCHOTIC DISORDER [None]
